FAERS Safety Report 12650648 (Version 1)
Quarter: 2016Q3

REPORT INFORMATION
  Report Type: Spontaneous
  Country: US (occurrence: US)
  Receive Date: 20160815
  Receipt Date: 20160815
  Transmission Date: 20161109
  Serious: No
  Sender: FDA-Public Use
  Company Number: US-BEH-2016072512

PATIENT
  Sex: Male
  Weight: 31.75 kg

DRUGS (6)
  1. RACEPINEPHRINE                     /00003903/ [Concomitant]
  2. FLONASE [Concomitant]
     Active Substance: FLUTICASONE PROPIONATE
  3. LIDOCAINE. [Concomitant]
     Active Substance: LIDOCAINE
  4. EPIPEN [Concomitant]
     Active Substance: EPINEPHRINE
  5. DIPHENHYDRAMINE. [Concomitant]
     Active Substance: DIPHENHYDRAMINE
  6. HIZENTRA [Suspect]
     Active Substance: HUMAN IMMUNOGLOBULIN G
     Indication: SELECTIVE IGG SUBCLASS DEFICIENCY
     Dosage: 4 G, QW
     Route: 058
     Dates: start: 20160227

REACTIONS (1)
  - Upper respiratory tract infection [Unknown]
